FAERS Safety Report 18131073 (Version 2)
Quarter: 2020Q4

REPORT INFORMATION
  Report Type: Spontaneous
  Country: US (occurrence: US)
  Receive Date: 20200810
  Receipt Date: 20201029
  Transmission Date: 20210113
  Serious: Yes (Hospitalization, Other)
  Sender: FDA-Public Use
  Company Number: US-ASTRAZENECA-2020SE98927

PATIENT
  Age: 28669 Day
  Sex: Male
  Weight: 87.1 kg

DRUGS (37)
  1. ONGLYZA [Suspect]
     Active Substance: SAXAGLIPTIN HYDROCHLORIDE
     Indication: TYPE 2 DIABETES MELLITUS
     Route: 048
     Dates: start: 20151206, end: 20190808
  2. LIPITOR [Concomitant]
     Active Substance: ATORVASTATIN CALCIUM
     Dates: start: 20190428
  3. BRILINTA [Concomitant]
     Active Substance: TICAGRELOR
     Dates: start: 20190428
  4. ENTRESTO [Concomitant]
     Active Substance: SACUBITRIL\VALSARTAN
     Dates: start: 20200820
  5. ANORO ELLIPTA [Concomitant]
     Active Substance: UMECLIDINIUM BROMIDE\VILANTEROL TRIFENATATE
     Dates: start: 20200820
  6. ALDACTONE [Concomitant]
     Active Substance: SPIRONOLACTONE
     Dates: start: 20200820
  7. XALATAN [Concomitant]
     Active Substance: LATANOPROST
     Dates: start: 20190428
  8. GLUCAGON. [Concomitant]
     Active Substance: GLUCAGON
     Dates: start: 20190429
  9. ALPHAGAN P [Concomitant]
     Active Substance: BRIMONIDINE TARTRATE
     Dates: start: 20180107
  10. ONGLYZA [Suspect]
     Active Substance: SAXAGLIPTIN HYDROCHLORIDE
     Indication: TYPE 2 DIABETES MELLITUS
     Route: 048
     Dates: start: 201503
  11. ONGLYZA [Suspect]
     Active Substance: SAXAGLIPTIN HYDROCHLORIDE
     Indication: TYPE 2 DIABETES MELLITUS
     Route: 048
     Dates: start: 20171012
  12. LOSARTAN-HYDROCHLOROTHIAZIDE [Concomitant]
     Active Substance: HYDROCHLOROTHIAZIDE\LOSARTAN
     Dates: start: 20190428
  13. DEXTROSE. [Concomitant]
     Active Substance: DEXTROSE
     Dates: start: 20190429
  14. XYLOCAINE [Concomitant]
     Active Substance: LIDOCAINE HYDROCHLORIDE
     Dates: start: 20180107
  15. JANUVIA [Concomitant]
     Active Substance: SITAGLIPTIN PHOSPHATE
     Dates: start: 20180107
  16. COSOPT [Concomitant]
     Active Substance: DORZOLAMIDE HYDROCHLORIDE\TIMOLOL MALEATE
     Dates: start: 20200820
  17. GLUCOPHAGE [Concomitant]
     Active Substance: METFORMIN HYDROCHLORIDE
     Dates: start: 20190428
  18. HUMALOG [Concomitant]
     Active Substance: INSULIN LISPRO
     Dates: start: 20190429
  19. NITROLINGUAL [Concomitant]
     Active Substance: NITROGLYCERIN
     Dates: start: 20180107
  20. ISORDIL [Concomitant]
     Active Substance: ISOSORBIDE DINITRATE
     Dates: start: 20200820
  21. BETAMETHASONE. [Concomitant]
     Active Substance: BETAMETHASONE
     Dates: start: 20200316
  22. TRIAMCINOLONE [Concomitant]
     Active Substance: TRIAMCINOLONE
     Dates: start: 20200316
  23. BUMETANIDE. [Concomitant]
     Active Substance: BUMETANIDE
     Dates: start: 20200316
  24. LASIX [Concomitant]
     Active Substance: FUROSEMIDE
     Dates: start: 20190429
  25. VERSED [Concomitant]
     Active Substance: MIDAZOLAM HYDROCHLORIDE
     Dates: start: 20180107
  26. PLAVIX [Concomitant]
     Active Substance: CLOPIDOGREL BISULFATE
     Dates: start: 20200820
  27. ZAROXOLYN [Concomitant]
     Active Substance: METOLAZONE
     Dates: start: 20200820
  28. LUMIGAN [Concomitant]
     Active Substance: BIMATOPROST
     Dates: start: 20200820
  29. BENADRYL [Concomitant]
     Active Substance: DIPHENHYDRAMINE HYDROCHLORIDE
     Dates: start: 20200820
  30. BACTROBAN [Concomitant]
     Active Substance: MUPIROCIN\MUPIROCIN CALCIUM
     Dates: start: 20200820
  31. LOVENOX [Concomitant]
     Active Substance: ENOXAPARIN SODIUM
     Dates: start: 20180107
  32. SUBLIMAZE [Concomitant]
     Active Substance: FENTANYL CITRATE
     Dates: start: 20180107
  33. ASPIRIN. [Concomitant]
     Active Substance: ASPIRIN
     Dates: start: 20190428
  34. TRAVATAN [Concomitant]
     Active Substance: TRAVOPROST
     Dates: start: 20180107
  35. ZOFRAN [Concomitant]
     Active Substance: ONDANSETRON HYDROCHLORIDE
     Dates: start: 20180107
  36. APRESOLINE HYDROCHLORIDE [Concomitant]
     Active Substance: HYDRALAZINE HYDROCHLORIDE
     Dates: start: 20200820
  37. DOXYCYCLINE. [Concomitant]
     Active Substance: DOXYCYCLINE
     Dates: start: 20200316

REACTIONS (6)
  - Angina pectoris [Unknown]
  - Coronary artery disease [Unknown]
  - Chest pain [Unknown]
  - Myocardial ischaemia [Unknown]
  - Cardiac failure congestive [Unknown]
  - Cardiac failure [Unknown]

NARRATIVE: CASE EVENT DATE: 20161214
